FAERS Safety Report 6419020-0 (Version None)
Quarter: 2009Q4

REPORT INFORMATION
  Report Type: 
  Country: None (occurrence: None)
  Receive Date: 20091029
  Receipt Date: 20091020
  Transmission Date: 20100525
  Serious: Yes (Hospitalization)
  Sender: FDA-Public Use
  Company Number: BR-ASTRAZENECA-2009SE21862

PATIENT
  Age: 7 Year
  Sex: Male
  Weight: 39 kg

DRUGS (3)
  1. SYMBICORT [Suspect]
     Indication: COUGH
     Dosage: DAILY
     Route: 055
     Dates: start: 20090401, end: 20090401
  2. MOTILIUM [Concomitant]
  3. ALLERGY VACCINE [Concomitant]

REACTIONS (2)
  - COORDINATION ABNORMAL [None]
  - DYSKINESIA [None]
